FAERS Safety Report 11835974 (Version 3)
Quarter: 2016Q2

REPORT INFORMATION
  Report Type: Report from Study
  Country: JP (occurrence: JP)
  Receive Date: 20151215
  Receipt Date: 20160521
  Transmission Date: 20160815
  Serious: Yes (Death, Other)
  Sender: FDA-Public Use
  Company Number: JP-AMGEN-JPNCT2015133373

PATIENT
  Age: 77 Year
  Sex: Male
  Weight: 59 kg

DRUGS (10)
  1. ROMIPLOSTIM [Suspect]
     Active Substance: ROMIPLOSTIM
     Dosage: 2 MUG/KG, QWK
     Route: 058
     Dates: start: 20130819, end: 20130826
  2. URSO [Concomitant]
     Active Substance: URSODIOL
     Indication: CHRONIC HEPATIC FAILURE
     Dosage: UNK
     Route: 048
  3. GLACTIV [Concomitant]
     Active Substance: SITAGLIPTIN
     Indication: DIABETES MELLITUS
     Dosage: UNK
     Route: 048
  4. ROMIPLOSTIM [Suspect]
     Active Substance: ROMIPLOSTIM
     Indication: IMMUNE THROMBOCYTOPENIC PURPURA
     Dosage: 1 MUG/KG, QD
     Route: 058
     Dates: start: 20130812, end: 20130812
  5. DIART [Concomitant]
     Active Substance: AZOSEMIDE
     Indication: CHRONIC HEPATIC FAILURE
     Dosage: UNK
     Route: 048
  6. AMINOLEBAN EN [Concomitant]
     Active Substance: UNSPECIFIED INGREDIENT
     Indication: CHRONIC HEPATIC FAILURE
     Dosage: UNK
     Route: 048
  7. MONILAC [Concomitant]
     Active Substance: LACTULOSE
     Indication: HYPERAMMONAEMIA
     Dosage: UNK
     Route: 048
  8. ALDACTONE A [Concomitant]
     Active Substance: SPIRONOLACTONE
     Indication: CHRONIC HEPATIC FAILURE
     Dosage: UNK
     Route: 048
  9. HUMALOG [Concomitant]
     Active Substance: INSULIN LISPRO
     Indication: DIABETES MELLITUS
     Dosage: UNK
     Route: 058
  10. ROMIPLOSTIM [Suspect]
     Active Substance: ROMIPLOSTIM
     Dosage: 2.5 MUG/KG, QD
     Route: 058
     Dates: start: 20131127, end: 20131127

REACTIONS (2)
  - Infection [Not Recovered/Not Resolved]
  - Hepatorenal syndrome [Fatal]

NARRATIVE: CASE EVENT DATE: 20131128
